FAERS Safety Report 21700076 (Version 1)
Quarter: 2022Q4

REPORT INFORMATION
  Report Type: Spontaneous
  Country: US (occurrence: None)
  Receive Date: 20221207
  Receipt Date: 20221207
  Transmission Date: 20230112
  Serious: Yes (Hospitalization)
  Sender: FDA-Public Use
  Company Number: None

PATIENT
  Age: 87 Year
  Sex: Male

DRUGS (2)
  1. ABIRATERONE ACETATE [Suspect]
     Active Substance: ABIRATERONE ACETATE
     Indication: Prostate cancer
     Dosage: OTHER FREQUENCY : ONE TIME NIGHTLY;?
     Route: 048
     Dates: start: 20161128
  2. LASIX [Suspect]
     Active Substance: FUROSEMIDE

REACTIONS (3)
  - Memory impairment [None]
  - Therapy interrupted [None]
  - Hypervolaemia [None]

NARRATIVE: CASE EVENT DATE: 20221128
